FAERS Safety Report 7638725-7 (Version None)
Quarter: 2011Q3

REPORT INFORMATION
  Report Type: 
  Country: None (occurrence: None)
  Receive Date: 20110727
  Receipt Date: 20110722
  Transmission Date: 20111222
  Serious: Yes (Hospitalization, Other)
  Sender: FDA-Public Use
  Company Number: US-AMGEN-USASP2011037694

PATIENT
  Age: 83 Year
  Sex: Female

DRUGS (3)
  1. CORTICOSTEROIDS [Concomitant]
  2. PREDNISONE TAB [Concomitant]
     Dosage: UNK
     Dates: start: 20070911
  3. NPLATE [Suspect]
     Indication: IDIOPATHIC THROMBOCYTOPENIC PURPURA
     Dosage: 4 A?G, UNK
     Dates: start: 20100908, end: 20100923

REACTIONS (2)
  - GRANULOCYTES ABNORMAL [None]
  - HOSPITALISATION [None]
